FAERS Safety Report 18549992 (Version 1)
Quarter: 2020Q4

REPORT INFORMATION
  Report Type: Spontaneous
  Country: BR (occurrence: BR)
  Receive Date: 20201126
  Receipt Date: 20201126
  Transmission Date: 20210114
  Serious: Yes (Other)
  Sender: FDA-Public Use
  Company Number: NVSC2020BR308938

PATIENT
  Age: 63 Year
  Sex: Female

DRUGS (6)
  1. RIBOCICLIB. [Suspect]
     Active Substance: RIBOCICLIB
     Indication: BREAST CANCER METASTATIC
     Dosage: 600 MG, QD
     Route: 065
     Dates: start: 201901
  2. FULVESTRANT. [Suspect]
     Active Substance: FULVESTRANT
     Indication: BREAST CANCER METASTATIC
     Dosage: 500 MG (LOADING DOSE D1, D15)
     Route: 065
     Dates: start: 201901
  3. EXEMESTANE. [Suspect]
     Active Substance: EXEMESTANE
     Indication: BREAST CANCER METASTATIC
     Route: 065
  4. EVEROLIMUS. [Suspect]
     Active Substance: EVEROLIMUS
     Indication: BREAST CANCER METASTATIC
     Route: 065
  5. DENOSUMAB [Suspect]
     Active Substance: DENOSUMAB
     Indication: BREAST CANCER METASTATIC
     Dosage: UNK UNK, QMO
     Route: 065
  6. TAMOXIFEN [Suspect]
     Active Substance: TAMOXIFEN
     Indication: BREAST CANCER METASTATIC
     Route: 065

REACTIONS (20)
  - Metastases to liver [Unknown]
  - Metastases to bone [Unknown]
  - Respiratory disorder [Unknown]
  - Productive cough [Recovering/Resolving]
  - Lung disorder [Unknown]
  - Bronchial wall thickening [Unknown]
  - Cough [Recovering/Resolving]
  - Nausea [Unknown]
  - Lymphangiosis carcinomatosa [Unknown]
  - Atelectasis [Unknown]
  - Carbohydrate antigen 15-3 increased [Unknown]
  - Bronchospasm [Recovering/Resolving]
  - Atypical pneumonia [Unknown]
  - Orthopnoea [Recovering/Resolving]
  - Malignant neoplasm progression [Unknown]
  - Rash [Unknown]
  - Pleural effusion [Unknown]
  - Mucosal inflammation [Unknown]
  - Dyspnoea exertional [Recovering/Resolving]
  - Asthenia [Unknown]

NARRATIVE: CASE EVENT DATE: 201909
